FAERS Safety Report 20611667 (Version 2)
Quarter: 2022Q1

REPORT INFORMATION
  Report Type: Report from Study
  Country: US (occurrence: US)
  Receive Date: 20220318
  Receipt Date: 20220318
  Transmission Date: 20220423
  Serious: Yes (Life-Threatening, Hospitalization, Other)
  Sender: FDA-Public Use
  Company Number: US-PFIZER INC-2018391779

PATIENT
  Age: 73 Year
  Sex: Male
  Weight: 116.28 kg

DRUGS (15)
  1. IBUPROFEN [Suspect]
     Active Substance: IBUPROFEN
     Indication: Back pain
     Dosage: 800 MG, TID
     Route: 048
     Dates: start: 20180818, end: 20180903
  2. CLOSTRIDIUM DIFFICILE [Suspect]
     Active Substance: CLOSTRIDIUM DIFFICILE
     Indication: Clostridium difficile immunisation
     Dosage: SINGLE DOSE
     Route: 030
     Dates: start: 20180906, end: 20180906
  3. CLOSTRIDIUM DIFFICILE [Suspect]
     Active Substance: CLOSTRIDIUM DIFFICILE
     Dosage: SINGLE DOSE
     Route: 030
     Dates: start: 20180404, end: 20180404
  4. CLOSTRIDIUM DIFFICILE [Suspect]
     Active Substance: CLOSTRIDIUM DIFFICILE
     Dosage: SINGLE DOSE
     Route: 030
     Dates: start: 20180307, end: 20180307
  5. CLOSTRIDIUM DIFFICILE [Suspect]
     Active Substance: CLOSTRIDIUM DIFFICILE
     Dosage: 200 MCG/MG
     Route: 030
     Dates: start: 20180905, end: 20180905
  6. ALBUTEROL [Concomitant]
     Active Substance: ALBUTEROL
     Indication: Dyspnoea
     Dosage: UNK
     Dates: start: 20180606
  7. AMLODIPINE BESYLATE [Concomitant]
     Active Substance: AMLODIPINE BESYLATE
     Indication: Hypertension
     Dosage: UNK
     Dates: start: 20160520
  8. ATORVASTATIN CALCIUM [Concomitant]
     Active Substance: ATORVASTATIN CALCIUM
     Indication: Hyperlipidaemia
     Dosage: UNK
     Dates: start: 20150102
  9. Budesonide 160/formoter inhaler [Concomitant]
     Indication: Dyspnoea
     Dosage: UNK
     Dates: start: 20180606
  10. CARBIDOPA [Concomitant]
     Active Substance: CARBIDOPA
     Indication: Hereditary motor and sensory neuropathy
     Dosage: UNK
     Dates: start: 20160707
  11. DOXAZOSIN MESYLATE [Concomitant]
     Active Substance: DOXAZOSIN MESYLATE
     Indication: Hypertension
     Dosage: UNK
     Dates: start: 20160325
  12. DULOXETINE HYDROCHLORIDE [Concomitant]
     Active Substance: DULOXETINE HYDROCHLORIDE
     Indication: Pain
     Dosage: UNK
     Dates: start: 20140409
  13. FUROSEMIDE [Concomitant]
     Active Substance: FUROSEMIDE
     Indication: Peripheral swelling
     Dosage: UNK
     Dates: start: 20130726
  14. METOPROLOL TARTRATE [Concomitant]
     Active Substance: METOPROLOL TARTRATE
     Indication: Hypertension
     Dosage: UNK
     Dates: start: 20070213
  15. RANITIDINE [Concomitant]
     Active Substance: RANITIDINE
     Indication: Gastrooesophageal reflux disease
     Dosage: UNK
     Dates: start: 20081106

REACTIONS (1)
  - Gastrointestinal haemorrhage [Recovered/Resolved]

NARRATIVE: CASE EVENT DATE: 20180924
